FAERS Safety Report 7978427-0 (Version None)
Quarter: 2011Q4

REPORT INFORMATION
  Report Type: 
  Country: None (occurrence: None)
  Receive Date: 20111205
  Receipt Date: 20111201
  Transmission Date: 20120403
  Serious: Yes (Life-Threatening)
  Sender: FDA-Public Use
  Company Number: 2011SP048702

PATIENT
  Age: 76 Year
  Sex: Female
  Weight: 52 kg

DRUGS (4)
  1. FENTANYL [Concomitant]
  2. SEVOFLURANE [Concomitant]
  3. ROCURONIUM BROMIDE [Suspect]
     Indication: NEUROMUSCULAR BLOCKING THERAPY
     Dosage: 40 MG;IV
     Route: 042
     Dates: start: 20110907, end: 20110907
  4. DIPRIVAN [Concomitant]

REACTIONS (3)
  - HYPOVENTILATION [None]
  - ANAPHYLACTIC SHOCK [None]
  - BRONCHOSPASM [None]
